FAERS Safety Report 5637074-6 (Version None)
Quarter: 2008Q1

REPORT INFORMATION
  Report Type: 
  Country: None (occurrence: None)
  Receive Date: 20080225
  Receipt Date: 20070816
  Transmission Date: 20080703
  Serious: No
  Sender: FDA-Public Use
  Company Number: US-BRISTOL-MYERS SQUIBB COMPANY-13879499

PATIENT
  Age: 60 Year
  Sex: Female
  Weight: 104 kg

DRUGS (6)
  1. GLUCOPHAGE [Suspect]
  2. LYRICA [Concomitant]
  3. LOTREL [Concomitant]
  4. LEXAPRO [Concomitant]
  5. ULTRACET [Concomitant]
  6. AMBIEN CR [Concomitant]

REACTIONS (1)
  - AGEUSIA [None]
